FAERS Safety Report 9198114 (Version 1)
Quarter: 2013Q1

REPORT INFORMATION
  Report Type: Spontaneous
  Country: US (occurrence: US)
  Receive Date: 20130329
  Receipt Date: 20130329
  Transmission Date: 20140127
  Serious: Yes (Life-Threatening, Congenital Anomaly, Other)
  Sender: FDA-Public Use
  Company Number: US-ELI_LILLY_AND_COMPANY-US201303008846

PATIENT
  Sex: 0

DRUGS (1)
  1. PROZAC [Suspect]
     Dosage: 1 DF, UNKNOWN
     Route: 064

REACTIONS (10)
  - Respiratory failure [Unknown]
  - Septic shock [Unknown]
  - Intestinal perforation [Unknown]
  - Necrotising colitis [Unknown]
  - Atrial septal defect [Unknown]
  - Congenital cardiovascular anomaly [Unknown]
  - Otitis media chronic [Unknown]
  - Adenoiditis [Unknown]
  - Chronic sinusitis [Unknown]
  - Foetal exposure during pregnancy [Unknown]
